FAERS Safety Report 23442773 (Version 1)
Quarter: 2024Q1

REPORT INFORMATION
  Report Type: Spontaneous
  Country: US (occurrence: None)
  Receive Date: 20240124
  Receipt Date: 20240124
  Transmission Date: 20240410
  Serious: No
  Sender: FDA-Public Use
  Company Number: None

PATIENT
  Age: 35 Year
  Sex: Female

DRUGS (1)
  1. AIMOVIG [Suspect]
     Active Substance: ERENUMAB-AOOE

REACTIONS (3)
  - Blood pressure increased [None]
  - Nausea [None]
  - Impaired work ability [None]

NARRATIVE: CASE EVENT DATE: 20240116
